FAERS Safety Report 16757980 (Version 1)
Quarter: 2019Q3

REPORT INFORMATION
  Report Type: Spontaneous
  Country: US (occurrence: US)
  Receive Date: 20190830
  Receipt Date: 20190830
  Transmission Date: 20191005
  Serious: No
  Sender: FDA-Public Use
  Company Number: US-009507513-1908USA010026

PATIENT
  Sex: Female

DRUGS (2)
  1. INTEGRILIN [Suspect]
     Active Substance: EPTIFIBATIDE
     Indication: BLOOD LACTATE DEHYDROGENASE INCREASED
  2. HEPARIN [Concomitant]
     Active Substance: HEPARIN SODIUM
     Indication: BLOOD LACTATE DEHYDROGENASE INCREASED
     Dosage: UNK

REACTIONS (1)
  - Off label use [Unknown]
